FAERS Safety Report 12204038 (Version 4)
Quarter: 2018Q1

REPORT INFORMATION
  Report Type: Spontaneous
  Country: US (occurrence: US)
  Receive Date: 20160323
  Receipt Date: 20180123
  Transmission Date: 20180508
  Serious: No
  Sender: FDA-Public Use
  Company Number: US-PFIZER INC-2016127797

PATIENT
  Age: 66 Year
  Sex: Female

DRUGS (1)
  1. XELJANZ [Suspect]
     Active Substance: TOFACITINIB CITRATE
     Dosage: 5 MG, UNK
     Dates: start: 20151002

REACTIONS (4)
  - Limb injury [Unknown]
  - Influenza [Recovering/Resolving]
  - Balance disorder [Unknown]
  - Nervous system disorder [Unknown]
